FAERS Safety Report 5830841-5 (Version None)
Quarter: 2008Q3

REPORT INFORMATION
  Report Type: 
  Country: None (occurrence: None)
  Receive Date: 20080801
  Receipt Date: 20071226
  Transmission Date: 20090109
  Serious: No
  Sender: FDA-Public Use
  Company Number: US-BRISTOL-MYERS SQUIBB COMPANY-14024939

PATIENT
  Age: 63 Year
  Sex: Female
  Weight: 66 kg

DRUGS (3)
  1. COUMADIN [Suspect]
     Route: 048
     Dates: start: 20071219
  2. DIOVAN [Concomitant]
  3. PERCOCET [Concomitant]

REACTIONS (1)
  - PARAESTHESIA [None]
